FAERS Safety Report 16072975 (Version 1)
Quarter: 2019Q1

REPORT INFORMATION
  Report Type: Report from Study
  Country: ES (occurrence: ES)
  Receive Date: 20190314
  Receipt Date: 20190314
  Transmission Date: 20190418
  Serious: Yes (Other)
  Sender: FDA-Public Use
  Company Number: ES-BRISTOL-MYERS SQUIBB COMPANY-BMS-2019-022266

PATIENT
  Age: 74 Year
  Sex: Male

DRUGS (1)
  1. ABATACEPT [Suspect]
     Active Substance: ABATACEPT
     Indication: RHEUMATOID ARTHRITIS
     Dosage: UNK, 1000 MILLIGRAM/4 SEMANAS
     Route: 042
     Dates: start: 20180416, end: 20190109

REACTIONS (1)
  - Mycobacterium kansasii infection [Recovering/Resolving]

NARRATIVE: CASE EVENT DATE: 20190208
